FAERS Safety Report 9284352 (Version 1)
Quarter: 2013Q2

REPORT INFORMATION
  Report Type: Report from Study
  Country: DE (occurrence: DE)
  Receive Date: 20130510
  Receipt Date: 20130510
  Transmission Date: 20140414
  Serious: Yes (Hospitalization)
  Sender: FDA-Public Use
  Company Number: DE-ABBOTT-13P-062-1086472-00

PATIENT
  Sex: Female

DRUGS (2)
  1. HUMIRA [Suspect]
     Indication: RHEUMATOID ARTHRITIS
     Route: 058
     Dates: start: 2011, end: 20111210
  2. HUMIRA [Suspect]
     Route: 058
     Dates: start: 20120119

REACTIONS (2)
  - Foot deformity [Recovered/Resolved]
  - Metatarsalgia [Recovered/Resolved]
